FAERS Safety Report 8187812-6 (Version None)
Quarter: 2012Q1

REPORT INFORMATION
  Report Type: 
  Country: None (occurrence: None)
  Receive Date: 20120306
  Receipt Date: 20120222
  Transmission Date: 20120608
  Serious: Yes (Hospitalization)
  Sender: FDA-Public Use
  Company Number: RU-CELGENEUS-251-21880-12022551

PATIENT
  Sex: Male
  Weight: 81 kg

DRUGS (10)
  1. LANSOPRAZOLE [Concomitant]
     Dosage: 30 MILLIGRAM
     Route: 048
     Dates: start: 20111122
  2. CARFILZOMIB [Suspect]
     Indication: MULTIPLE MYELOMA
     Route: 065
  3. ASPIRIN [Suspect]
     Indication: GOUTY ARTHRITIS
     Dosage: 100 MILLIGRAM
     Route: 048
     Dates: start: 20120210, end: 20120220
  4. ANTIBIOTICS [Concomitant]
     Indication: ANTIBIOTIC PROPHYLAXIS
     Route: 065
  5. DEXAMETHASONE [Suspect]
     Route: 065
     Dates: start: 20120117, end: 20120207
  6. ANTIVIRALS [Concomitant]
     Indication: ANTIVIRAL PROPHYLAXIS
     Route: 065
  7. DIABETON [Concomitant]
     Indication: TYPE 2 DIABETES MELLITUS
     Dosage: 30 MILLIGRAM
     Route: 048
     Dates: start: 20111102
  8. REVLIMID [Suspect]
     Indication: MULTIPLE MYELOMA
     Route: 048
     Dates: start: 20111122, end: 20111212
  9. REVLIMID [Suspect]
     Route: 048
     Dates: start: 20120117, end: 20120206
  10. DEXAMETHASONE [Suspect]
     Indication: MULTIPLE MYELOMA
     Route: 065
     Dates: start: 20111122, end: 20111213

REACTIONS (2)
  - PLATELET DISORDER [None]
  - VASCULITIS [None]
